FAERS Safety Report 21978342 (Version 1)
Quarter: 2023Q1

REPORT INFORMATION
  Report Type: Spontaneous
  Country: DE (occurrence: DE)
  Receive Date: 20230210
  Receipt Date: 20230210
  Transmission Date: 20230417
  Serious: Yes (Other)
  Sender: FDA-Public Use
  Company Number: DE-SAMSUNG BIOEPIS-SB-2022-28630

PATIENT
  Age: 32 Year
  Sex: Male

DRUGS (2)
  1. IMRALDI [Suspect]
     Active Substance: ADALIMUMAB
     Indication: Axial spondyloarthritis
     Route: 065
     Dates: start: 20181211
  2. ETORICOXIB [Concomitant]
     Active Substance: ETORICOXIB
     Indication: Product used for unknown indication
     Route: 065
     Dates: start: 20180307

REACTIONS (3)
  - Paternal exposure during pregnancy [Recovered/Resolved]
  - Complication of pregnancy [Unknown]
  - Abortion [Unknown]

NARRATIVE: CASE EVENT DATE: 20210618
